FAERS Safety Report 8601861-2 (Version None)
Quarter: 2012Q3

REPORT INFORMATION
  Report Type: 
  Country: None (occurrence: None)
  Receive Date: 20120817
  Receipt Date: 20120531
  Transmission Date: 20120928
  Serious: Yes (Hospitalization, Other)
  Sender: FDA-Public Use
  Company Number: US-BRISTOL-MYERS SQUIBB COMPANY-16577751

PATIENT
  Age: 72 Year
  Sex: Male
  Weight: 79 kg

DRUGS (1)
  1. SPRYCEL [Suspect]
     Indication: CHRONIC MYELOID LEUKAEMIA
     Dosage: TABLET DURATION: FOR 14 DAYS INTERRUPTED ON 17APR12
     Route: 048
     Dates: start: 20120403

REACTIONS (4)
  - PULMONARY OEDEMA [None]
  - PLEURAL EFFUSION [None]
  - ASTHENIA [None]
  - PNEUMONIA [None]
